FAERS Safety Report 16802425 (Version 5)
Quarter: 2019Q4

REPORT INFORMATION
  Report Type: Report from Study
  Country: US (occurrence: US)
  Receive Date: 20190912
  Receipt Date: 20191111
  Transmission Date: 20200122
  Serious: Yes (Hospitalization, Other)
  Sender: FDA-Public Use
  Company Number: US-ACTELION-A-US2019-195338

PATIENT
  Sex: Female
  Weight: 92.97 kg

DRUGS (4)
  1. UPTRAVI [Suspect]
     Active Substance: SELEXIPAG
     Indication: PULMONARY ARTERIAL HYPERTENSION
     Dosage: 200 MCG, BID
     Route: 048
  2. AMBRISENTAN [Concomitant]
     Active Substance: AMBRISENTAN
  3. UPTRAVI [Suspect]
     Active Substance: SELEXIPAG
     Dosage: 400 MCG
     Route: 048
  4. TADALAFIL. [Concomitant]
     Active Substance: TADALAFIL

REACTIONS (20)
  - Osteitis deformans [Unknown]
  - Neuropathy peripheral [Unknown]
  - Nasal congestion [Unknown]
  - Fatigue [Unknown]
  - Oxygen saturation decreased [Not Recovered/Not Resolved]
  - Burning sensation [Unknown]
  - Mastectomy [Unknown]
  - Visual impairment [Recovering/Resolving]
  - Post procedural drainage [Unknown]
  - Dizziness [Recovering/Resolving]
  - Diarrhoea [Recovering/Resolving]
  - Headache [Unknown]
  - Nausea [Not Recovered/Not Resolved]
  - Vomiting [Recovering/Resolving]
  - Breast disorder female [Unknown]
  - Malaise [Recovering/Resolving]
  - Limb discomfort [Unknown]
  - Conjunctival haemorrhage [Unknown]
  - Pain [Recovering/Resolving]
  - Influenza like illness [Unknown]
